FAERS Safety Report 6441164-8 (Version None)
Quarter: 2009Q4

REPORT INFORMATION
  Report Type: 
  Country: None (occurrence: None)
  Receive Date: 20091116
  Receipt Date: 20091105
  Transmission Date: 20100525
  Serious: Yes (Hospitalization)
  Sender: FDA-Public Use
  Company Number: DE-CUBIST-2009S1000395

PATIENT
  Age: 79 Year
  Sex: Female

DRUGS (1)
  1. CUBICIN [Suspect]
     Indication: ENDOCARDITIS
     Route: 042
     Dates: start: 20090801

REACTIONS (2)
  - ILEUS PARALYTIC [None]
  - VOMITING [None]
